FAERS Safety Report 7920910-8 (Version None)
Quarter: 2011Q4

REPORT INFORMATION
  Report Type: 
  Country: None (occurrence: None)
  Receive Date: 20111117
  Receipt Date: 20111007
  Transmission Date: 20120403
  Serious: No
  Sender: FDA-Public Use
  Company Number: US-GLAXOSMITHKLINE-A0948237A

PATIENT
  Age: 75 Year
  Sex: Female

DRUGS (4)
  1. KLONOPIN [Concomitant]
  2. DILTIAZEM HCL [Concomitant]
  3. LEVOTHYROXINE SODIUM [Concomitant]
  4. VOTRIENT [Suspect]
     Indication: RENAL CELL CARCINOMA
     Dosage: 3TAB PER DAY
     Route: 048
     Dates: start: 20110907

REACTIONS (3)
  - ABDOMINAL PAIN UPPER [None]
  - EPIGASTRIC DISCOMFORT [None]
  - CONTUSION [None]
